FAERS Safety Report 12707604 (Version 1)
Quarter: 2016Q3

REPORT INFORMATION
  Report Type: Report from Study
  Country: BR (occurrence: BR)
  Receive Date: 20160901
  Receipt Date: 20160901
  Transmission Date: 20161109
  Serious: Yes (Disabling, Other)
  Sender: FDA-Public Use
  Company Number: BR-ABBVIE-16P-020-1713457-00

PATIENT
  Age: 56 Year
  Sex: Female
  Weight: 80 kg

DRUGS (8)
  1. RACEMETHIONINE/CHOLINE CHLORIDE (XANTINON) (NON-ABBVIE) [Concomitant]
     Indication: HEPATIC STEATOSIS
     Route: 048
  2. HUMIRA [Suspect]
     Active Substance: ADALIMUMAB
     Indication: RHEUMATOID ARTHRITIS
     Route: 058
     Dates: start: 20151014
  3. NEO FENICOL [Concomitant]
     Indication: SINUSITIS
     Route: 048
  4. LOSARTAN. [Concomitant]
     Active Substance: LOSARTAN
     Indication: HYPERTENSION
     Route: 048
  5. LASIX [Concomitant]
     Active Substance: FUROSEMIDE
     Indication: DYSURIA
     Dosage: 1 OR 2 TIMES A WEEK
     Route: 048
  6. SIMVASTATIN (NON-ABBVIE) [Concomitant]
     Indication: BLOOD CHOLESTEROL ABNORMAL
     Route: 048
  7. OMEPRAZOLE. [Concomitant]
     Active Substance: OMEPRAZOLE
     Indication: GASTRIC DISORDER
     Route: 048
  8. ATENOLOL. [Concomitant]
     Active Substance: ATENOLOL
     Indication: HYPERTENSION
     Route: 048

REACTIONS (18)
  - Malaise [Recovered/Resolved]
  - Vitamin D deficiency [Unknown]
  - Cataract [Not Recovered/Not Resolved]
  - Nausea [Recovered/Resolved]
  - Fall [Recovered/Resolved]
  - Sinusitis [Recovered/Resolved]
  - Dry mouth [Unknown]
  - Activities of daily living impaired [Unknown]
  - Ear pain [Recovered/Resolved]
  - Hypertension [Recovered/Resolved]
  - Pharyngitis [Unknown]
  - Diabetes mellitus [Recovering/Resolving]
  - Neck pain [Recovered/Resolved]
  - Hepatic steatosis [Recovering/Resolving]
  - Pain [Not Recovered/Not Resolved]
  - Fractured coccyx [Recovered/Resolved]
  - Arthralgia [Recovered/Resolved]
  - Drug ineffective [Unknown]

NARRATIVE: CASE EVENT DATE: 201512
